FAERS Safety Report 6387427-6 (Version None)
Quarter: 2009Q3

REPORT INFORMATION
  Report Type: 
  Country: None (occurrence: None)
  Receive Date: 20090930
  Receipt Date: 20090917
  Transmission Date: 20100115
  Serious: Yes (Hospitalization)
  Sender: FDA-Public Use
  Company Number: 231015K09USA

PATIENT
  Age: 52 Year
  Sex: Male

DRUGS (9)
  1. REBIF [Suspect]
     Indication: MULTIPLE SCLEROSIS
     Dosage: 44 MCG, 3 IN 1 WEEKS, SUBCUTANEOUS
     Route: 058
     Dates: start: 20050712
  2. SIMVASTATIN [Concomitant]
  3. METFORMIN HCL [Concomitant]
  4. HUMALOG [Concomitant]
  5. LANTUS [Concomitant]
  6. LISINOPRIL [Concomitant]
  7. CITALOPRAM HYDROBOMIDE (CITALOPRAM HYDROBROMIDE) [Concomitant]
  8. ACETYLASALICYLIC ACID (ACETYLSALICYLIC ACID) [Concomitant]
  9. VITAMIN B12 [Concomitant]

REACTIONS (2)
  - TRANSIENT ISCHAEMIC ATTACK [None]
  - WALKING AID USER [None]
